FAERS Safety Report 8340857-5 (Version None)
Quarter: 2012Q2

REPORT INFORMATION
  Report Type: 
  Country: None (occurrence: None)
  Receive Date: 20120503
  Receipt Date: 20120503
  Transmission Date: 20120825
  Serious: Yes (Other)
  Sender: FDA-Public Use
  Company Number: None

PATIENT
  Sex: Female
  Weight: 81.6 kg

DRUGS (1)
  1. MYCOPHENOLATE MOFETIL [Suspect]
     Dosage: 1000 MG BID PO
     Route: 048
     Dates: start: 20080801

REACTIONS (1)
  - DIARRHOEA [None]
